FAERS Safety Report 9373480 (Version 1)
Quarter: 2013Q2

REPORT INFORMATION
  Report Type: Spontaneous
  Country: BR (occurrence: BR)
  Receive Date: 20130627
  Receipt Date: 20130627
  Transmission Date: 20140414
  Serious: Yes (Other)
  Sender: FDA-Public Use
  Company Number: BR-VERTEX PHARMACEUTICALS INC-2013-007510

PATIENT
  Age: 58 Year
  Sex: Male
  Weight: 65 kg

DRUGS (8)
  1. INCIVO [Suspect]
     Indication: HEPATITIS C
     Dosage: UNK, TID
     Route: 065
     Dates: start: 20130524
  2. INTERFERON [Concomitant]
     Indication: PRODUCT USED FOR UNKNOWN INDICATION
     Dosage: DOSAGE FORM: UNKNOWN
     Route: 065
     Dates: start: 2013
  3. RIBAVIRIN [Concomitant]
     Indication: PRODUCT USED FOR UNKNOWN INDICATION
     Dosage: DOSAGE FORM: UNKNOWN
     Route: 065
  4. AMLODIPINA [Concomitant]
     Indication: HYPERTENSION
     Dosage: DOSAGE FORM: UNKNOWN
     Route: 065
     Dates: start: 2011
  5. RIVOTRIL [Concomitant]
     Indication: SLEEP DISORDER THERAPY
     Dosage: DOSAGE FORM: UNKNOWN
     Route: 065
     Dates: start: 2003
  6. FENERGAN [Concomitant]
     Indication: PROPHYLAXIS
     Dosage: DOSAGE FORM: UNKNOWN
     Route: 065
     Dates: start: 2003
  7. DONAREN [Concomitant]
     Indication: SLEEP DISORDER THERAPY
     Dosage: DOSAGE FORM: UNKNOWN
     Route: 065
     Dates: start: 2003
  8. AMPLICTIL [Concomitant]
     Indication: SLEEP DISORDER THERAPY
     Dosage: DOSAGE FORM: UNKNOWN
     Route: 065
     Dates: start: 2003

REACTIONS (1)
  - Visual impairment [Not Recovered/Not Resolved]
